FAERS Safety Report 18637741 (Version 2)
Quarter: 2021Q1

REPORT INFORMATION
  Report Type: Spontaneous
  Country: JP (occurrence: JP)
  Receive Date: 20201218
  Receipt Date: 20210105
  Transmission Date: 20210419
  Serious: Yes (Death)
  Sender: FDA-Public Use
  Company Number: NVSJ2020JP008660

PATIENT
  Age: 56 Year
  Sex: Female
  Weight: 52 kg

DRUGS (4)
  1. AMLODIPINE [Suspect]
     Active Substance: AMLODIPINE BESYLATE
     Dosage: 10 MG
     Route: 048
  2. VOTRIENT [Suspect]
     Active Substance: PAZOPANIB HYDROCHLORIDE
     Indication: UTERINE LEIOMYOSARCOMA
     Dosage: 800 MG, QD
     Route: 048
     Dates: start: 20180110, end: 20180301
  3. AMLODIPINE [Suspect]
     Active Substance: AMLODIPINE BESYLATE
     Dosage: 7.5 MG
     Route: 048
     Dates: start: 20180122
  4. AMLODIPINE [Suspect]
     Active Substance: AMLODIPINE BESYLATE
     Indication: HYPERTENSION
     Dosage: 2.5 MG
     Route: 048

REACTIONS (4)
  - Hypertension [Recovering/Resolving]
  - Uterine leiomyosarcoma [Fatal]
  - Malignant neoplasm progression [Fatal]
  - Drug ineffective [Unknown]

NARRATIVE: CASE EVENT DATE: 20180122
